FAERS Safety Report 4399458-6 (Version None)
Quarter: 2004Q3

REPORT INFORMATION
  Report Type: 
  Country: None (occurrence: None)
  Receive Date: 20040712
  Receipt Date: 20040629
  Transmission Date: 20050211
  Serious: No
  Sender: FDA-Public Use
  Company Number: 04-000401

PATIENT
  Age: 31 Year
  Sex: Female

DRUGS (1)
  1. OVCON-35 [Suspect]
     Indication: CONTRACEPTION
     Dosage: 35/400UG, QD, ORAL
     Route: 048
     Dates: start: 20040628, end: 20040628

REACTIONS (1)
  - ANAPHYLACTIC REACTION [None]
